FAERS Safety Report 8063941-2 (Version None)
Quarter: 2012Q1

REPORT INFORMATION
  Report Type: 
  Country: None (occurrence: None)
  Receive Date: 20120123
  Receipt Date: 20120112
  Transmission Date: 20120608
  Serious: Yes (Death, Other)
  Sender: FDA-Public Use
  Company Number: ES-ROCHE-GNE288056

PATIENT
  Age: 80 Year
  Sex: Female

DRUGS (1)
  1. ALTEPLASE [Suspect]
     Indication: ISCHAEMIC STROKE
     Dosage: 15 MG, UNK
     Route: 042

REACTIONS (2)
  - AORTIC DISSECTION [None]
  - BLOOD PRESSURE DECREASED [None]
